FAERS Safety Report 16846510 (Version 1)
Quarter: 2019Q3

REPORT INFORMATION
  Report Type: Spontaneous
  Country: US (occurrence: US)
  Receive Date: 20190924
  Receipt Date: 20190924
  Transmission Date: 20191005
  Serious: Yes (Hospitalization)
  Sender: FDA-Public Use
  Company Number: US-CELGENEUS-USA-20190906752

PATIENT
  Age: 62 Year
  Sex: Female

DRUGS (1)
  1. OTEZLA [Suspect]
     Active Substance: APREMILAST
     Indication: PSORIASIS
     Dosage: 60 MILLIGRAM
     Route: 048
     Dates: start: 20190304

REACTIONS (5)
  - Palpitations [Unknown]
  - Dizziness [Unknown]
  - Atrial fibrillation [Unknown]
  - Haemorrhage [Unknown]
  - Pain [Unknown]

NARRATIVE: CASE EVENT DATE: 201905
